FAERS Safety Report 25438933 (Version 1)
Quarter: 2025Q2

REPORT INFORMATION
  Report Type: Report from Study
  Country: JP (occurrence: JP)
  Receive Date: 20250616
  Receipt Date: 20250616
  Transmission Date: 20250717
  Serious: Yes (Other)
  Sender: NOVARTIS
  Company Number: JP-002147023-NVSJ2024JP011451

PATIENT
  Age: 14 Year
  Sex: Male

DRUGS (2)
  1. MEKINIST [Suspect]
     Active Substance: TRAMETINIB DIMETHYL SULFOXIDE
     Indication: Astrocytoma malignant
     Dosage: 2 MG, QD
     Route: 048
     Dates: start: 20240801, end: 20240925
  2. MEKINIST [Suspect]
     Active Substance: TRAMETINIB DIMETHYL SULFOXIDE
     Route: 048
     Dates: start: 20241017

REACTIONS (14)
  - Dermatitis acneiform [Recovering/Resolving]
  - Pharyngeal inflammation [Recovered/Resolved]
  - Headache [Not Recovered/Not Resolved]
  - Amylase increased [Unknown]
  - Gamma-glutamyltransferase increased [Unknown]
  - Nausea [Recovered/Resolved]
  - Diarrhoea [Not Recovered/Not Resolved]
  - Alanine aminotransferase increased [Not Recovered/Not Resolved]
  - Aspartate aminotransferase increased [Not Recovered/Not Resolved]
  - Abdominal pain [Not Recovered/Not Resolved]
  - Stomatitis [Not Recovered/Not Resolved]
  - Paronychia [Unknown]
  - Blood creatine phosphokinase increased [Unknown]
  - Anaemia [Recovered/Resolved]

NARRATIVE: CASE EVENT DATE: 20240804
